FAERS Safety Report 10932699 (Version 2)
Quarter: 2015Q2

REPORT INFORMATION
  Report Type: Report from Study
  Country: US (occurrence: US)
  Receive Date: 20150320
  Receipt Date: 20150416
  Transmission Date: 20150821
  Serious: Yes (Other)
  Sender: FDA-Public Use
  Company Number: US-AMGEN-USASL2015025172

PATIENT
  Age: 60 Year
  Sex: Male
  Weight: 113.38 kg

DRUGS (2)
  1. ENBREL [Suspect]
     Active Substance: ETANERCEPT
     Indication: PSORIATIC ARTHROPATHY
     Dosage: 50 MG, QWK
     Route: 058
     Dates: start: 2005
  2. ENBREL [Suspect]
     Active Substance: ETANERCEPT
     Indication: PSORIASIS

REACTIONS (7)
  - Knee arthroplasty [Unknown]
  - Neuralgia [Unknown]
  - Nail disorder [Unknown]
  - Infection [Unknown]
  - Hypoaesthesia [Unknown]
  - Arthralgia [Unknown]
  - Skin graft [Unknown]

NARRATIVE: CASE EVENT DATE: 2013
